FAERS Safety Report 9088143 (Version 2)
Quarter: 2013Q1

REPORT INFORMATION
  Report Type: Spontaneous
  Country: US (occurrence: US)
  Receive Date: 20130201
  Receipt Date: 20130211
  Transmission Date: 20140127
  Serious: Yes (Other)
  Sender: FDA-Public Use
  Company Number: US-PFIZER INC-2013036925

PATIENT
  Age: 56 Year
  Sex: Male

DRUGS (6)
  1. SULFASALAZINE [Suspect]
     Indication: RHEUMATOID ARTHRITIS
     Dosage: 1000 MG, 2X/DAY
  2. SULFASALAZINE [Suspect]
     Indication: PULMONARY FIBROSIS
  3. HYDROXYCHLOROQUINE [Suspect]
     Indication: RHEUMATOID ARTHRITIS
     Dosage: 200 MG, 2X/DAY
  4. HYDROXYCHLOROQUINE [Suspect]
     Indication: PULMONARY FIBROSIS
  5. PREDNISONE [Concomitant]
     Indication: RHEUMATOID ARTHRITIS
     Dosage: 5 MG, 1X/DAY
  6. PREDNISONE [Concomitant]
     Indication: PULMONARY FIBROSIS

REACTIONS (2)
  - Arthritis [Recovered/Resolved]
  - Dyspnoea exertional [Recovered/Resolved]
